FAERS Safety Report 23075851 (Version 1)
Quarter: 2023Q4

REPORT INFORMATION
  Report Type: Spontaneous
  Country: US (occurrence: US)
  Receive Date: 20231017
  Receipt Date: 20231017
  Transmission Date: 20240110
  Serious: Yes (Other)
  Sender: FDA-Public Use
  Company Number: US-SUN PHARMACEUTICAL INDUSTRIES LTD-2023R1-412170

PATIENT
  Age: 42 Year
  Sex: Female

DRUGS (4)
  1. DOXYCYCLINE [Suspect]
     Active Substance: DOXYCYCLINE
     Indication: Inflammation
     Dosage: 40 MILLIGRAM, DAILY
     Route: 048
  2. HALCINONIDE [Suspect]
     Active Substance: HALCINONIDE
     Indication: Inflammation
     Dosage: UNK UNK, BID
     Route: 061
  3. MINOXIDIL [Concomitant]
     Active Substance: MINOXIDIL
     Indication: Alopecia
     Dosage: 2.5 MILLIGRAM, DAILY
     Route: 048
  4. TRIAMCINOLONE [Concomitant]
     Active Substance: TRIAMCINOLONE
     Indication: Inflammation
     Dosage: 5 MILLIGRAM PER MILLILITRE, MONTHLY
     Route: 065

REACTIONS (2)
  - Gastrointestinal disorder [Unknown]
  - Therapy cessation [Unknown]
